FAERS Safety Report 6217555-7 (Version None)
Quarter: 2009Q2

REPORT INFORMATION
  Report Type: 
  Country: None (occurrence: None)
  Receive Date: 20090608
  Receipt Date: 20090330
  Transmission Date: 20091009
  Serious: No
  Sender: FDA-Public Use
  Company Number: A0769502A

PATIENT
  Age: 54 Year
  Sex: Male
  Weight: 164.5 kg

DRUGS (6)
  1. WELLBUTRIN XL [Suspect]
     Indication: DEPRESSION
     Route: 048
     Dates: start: 20050101
  2. MORPHINE [Concomitant]
  3. OXYCODONE [Concomitant]
  4. ACCUPRIL [Concomitant]
  5. PRILOSEC [Concomitant]
  6. HYDROCHLOROTHIAZIDE [Concomitant]

REACTIONS (1)
  - DRUG SCREEN FALSE POSITIVE [None]
